FAERS Safety Report 9541404 (Version 1)
Quarter: 2013Q3

REPORT INFORMATION
  Report Type: Spontaneous
  Country: US (occurrence: None)
  Receive Date: 20130919
  Receipt Date: 20130919
  Transmission Date: 20140515
  Serious: Yes (Other)
  Sender: FDA-Public Use
  Company Number: None

PATIENT
  Age: 49 Year
  Sex: Female
  Weight: 99.79 kg

DRUGS (1)
  1. XARELTO 20 MG [Suspect]
     Indication: DEEP VEIN THROMBOSIS
     Dosage: 20 MG QD PO
     Route: 048
     Dates: start: 201304

REACTIONS (1)
  - Pain in extremity [None]
